FAERS Safety Report 23521172 (Version 1)
Quarter: 2024Q1

REPORT INFORMATION
  Report Type: Report from Study
  Country: JP (occurrence: JP)
  Receive Date: 20240214
  Receipt Date: 20240214
  Transmission Date: 20240410
  Serious: Yes (Death, Hospitalization)
  Sender: FDA-Public Use
  Company Number: JP-ABBVIE-5288722

PATIENT
  Age: 83 Year
  Sex: Male

DRUGS (65)
  1. VENCLEXTA [Suspect]
     Active Substance: VENETOCLAX
     Indication: Acute myeloid leukaemia
     Dosage: 400MG
     Route: 048
     Dates: start: 20230110, end: 20230130
  2. VENCLEXTA [Suspect]
     Active Substance: VENETOCLAX
     Indication: Acute myeloid leukaemia
     Dosage: 400 MILLIGRAM
     Route: 048
     Dates: start: 20221018, end: 20221107
  3. VENCLEXTA [Suspect]
     Active Substance: VENETOCLAX
     Indication: Acute myeloid leukaemia
     Dosage: 200 MILLIGRAM
     Route: 048
     Dates: start: 20220119, end: 20220119
  4. VENCLEXTA [Suspect]
     Active Substance: VENETOCLAX
     Indication: Acute myeloid leukaemia
     Dosage: 400 MILLIGRAM
     Route: 048
     Dates: start: 20220823, end: 20220912
  5. VENCLEXTA [Suspect]
     Active Substance: VENETOCLAX
     Indication: Acute myeloid leukaemia
     Dosage: 400 MILLIGRAM
     Route: 048
     Dates: start: 20220920, end: 20221010
  6. VENCLEXTA [Suspect]
     Active Substance: VENETOCLAX
     Indication: Acute myeloid leukaemia
     Dosage: 400 MILLIGRAM
     Route: 048
     Dates: start: 20220726, end: 20220815
  7. VENCLEXTA [Suspect]
     Active Substance: VENETOCLAX
     Indication: Acute myeloid leukaemia
     Dosage: 50 MILLIGRAM
     Route: 048
     Dates: start: 20220222, end: 20220307
  8. VENCLEXTA [Suspect]
     Active Substance: VENETOCLAX
     Indication: Acute myeloid leukaemia
     Dosage: 400 MILLIGRAM
     Route: 048
     Dates: start: 20221115, end: 20221206
  9. VENCLEXTA [Suspect]
     Active Substance: VENETOCLAX
     Indication: Acute myeloid leukaemia
     Dosage: 400 MILLIGRAM
     Route: 048
     Dates: start: 20220530, end: 20220619
  10. VENCLEXTA [Suspect]
     Active Substance: VENETOCLAX
     Indication: Acute myeloid leukaemia
     Dosage: 400 MILLIGRAM
     Route: 048
     Dates: start: 20220325, end: 20220425
  11. VENCLEXTA [Suspect]
     Active Substance: VENETOCLAX
     Indication: Acute myeloid leukaemia
     Dosage: 400 MILLIGRAM
     Route: 048
     Dates: start: 20220502, end: 20220522
  12. VENCLEXTA [Suspect]
     Active Substance: VENETOCLAX
     Indication: Acute myeloid leukaemia
     Dosage: 100 MILLIGRAM
     Route: 048
     Dates: start: 20220118, end: 20220118
  13. VENCLEXTA [Suspect]
     Active Substance: VENETOCLAX
     Indication: Acute myeloid leukaemia
     Dosage: 400 MILLIGRAM
     Route: 048
     Dates: start: 20220120, end: 20220215
  14. VENCLEXTA [Suspect]
     Active Substance: VENETOCLAX
     Indication: Acute myeloid leukaemia
     Dosage: 400 MILLIGRAM
     Route: 048
     Dates: start: 20221213, end: 20230102
  15. VENCLEXTA [Suspect]
     Active Substance: VENETOCLAX
     Indication: Acute myeloid leukaemia
     Dosage: 400 MILLIGRAM
     Route: 048
     Dates: start: 20220627, end: 20220717
  16. VENCLEXTA [Suspect]
     Active Substance: VENETOCLAX
     Indication: Acute myeloid leukaemia
     Dosage: 400 MILLIGRAM
     Route: 048
     Dates: start: 20230207, end: 20230216
  17. ISEPAMICIN SULFATE [Concomitant]
     Active Substance: ISEPAMICIN SULFATE
     Indication: Pyrexia
     Dates: end: 20220921
  18. ISEPAMICIN SULFATE [Concomitant]
     Active Substance: ISEPAMICIN SULFATE
     Indication: Pyrexia
     Dates: end: 20220921
  19. ISEPAMICIN SULFATE [Concomitant]
     Active Substance: ISEPAMICIN SULFATE
     Indication: Pyrexia
     Dates: start: 20230212, end: 20230215
  20. ISEPAMICIN SULFATE [Concomitant]
     Active Substance: ISEPAMICIN SULFATE
     Indication: Pyrexia
     Dates: start: 20220228, end: 20220307
  21. ISEPAMICIN SULFATE [Concomitant]
     Active Substance: ISEPAMICIN SULFATE
     Indication: Pyrexia
     Dates: start: 20220228, end: 20220307
  22. CEFAZOLIN SODIUM [Concomitant]
     Active Substance: CEFAZOLIN SODIUM
     Indication: Pyrexia
     Dates: start: 20220228, end: 20220307
  23. CEFAZOLIN SODIUM [Concomitant]
     Active Substance: CEFAZOLIN SODIUM
     Indication: Pyrexia
     Dates: end: 20220921
  24. CEFAZOLIN SODIUM [Concomitant]
     Active Substance: CEFAZOLIN SODIUM
     Indication: Pyrexia
     Dates: end: 20220921
  25. CEFAZOLIN SODIUM [Concomitant]
     Active Substance: CEFAZOLIN SODIUM
     Indication: Pyrexia
     Dates: start: 20220228, end: 20220307
  26. CEFAZOLIN SODIUM [Concomitant]
     Active Substance: CEFAZOLIN SODIUM
     Indication: Pyrexia
     Dates: start: 20230212, end: 20230215
  27. LEVOFLOXACIN HEMIHYDRATE [Concomitant]
     Active Substance: LEVOFLOXACIN
     Indication: Neutrophil count decreased
     Dates: start: 20220909, end: 20220921
  28. LEVOFLOXACIN HEMIHYDRATE [Concomitant]
     Active Substance: LEVOFLOXACIN
     Indication: Neutrophil count decreased
     Dates: start: 20220717, end: 20220725
  29. LEVOFLOXACIN HEMIHYDRATE [Concomitant]
     Active Substance: LEVOFLOXACIN
     Indication: Neutrophil count decreased
     Dates: start: 20220222, end: 20220322
  30. LEVOFLOXACIN HEMIHYDRATE [Concomitant]
     Active Substance: LEVOFLOXACIN
     Indication: Neutrophil count decreased
     Dates: start: 20221012, end: 20221017
  31. LEVOFLOXACIN HEMIHYDRATE [Concomitant]
     Active Substance: LEVOFLOXACIN
     Indication: Neutrophil count decreased
     Dates: start: 20221209, end: 20221213
  32. LEVOFLOXACIN HEMIHYDRATE [Concomitant]
     Active Substance: LEVOFLOXACIN
     Indication: Neutrophil count decreased
     Dates: start: 20220909, end: 20220921
  33. LEVOFLOXACIN HEMIHYDRATE [Concomitant]
     Active Substance: LEVOFLOXACIN
     Indication: Neutrophil count decreased
     Dates: start: 20220717, end: 20220725
  34. LEVOFLOXACIN HEMIHYDRATE [Concomitant]
     Active Substance: LEVOFLOXACIN
     Indication: Neutrophil count decreased
     Dates: start: 20220618, end: 20220624
  35. LEVOFLOXACIN HEMIHYDRATE [Concomitant]
     Active Substance: LEVOFLOXACIN
     Indication: Neutrophil count decreased
     Dates: start: 20220123, end: 20220216
  36. LEVOFLOXACIN HEMIHYDRATE [Concomitant]
     Active Substance: LEVOFLOXACIN
     Indication: Neutrophil count decreased
     Dates: start: 20220522, end: 20220602
  37. LEVOFLOXACIN HEMIHYDRATE [Concomitant]
     Active Substance: LEVOFLOXACIN
     Indication: Neutrophil count decreased
     Dates: start: 20221012, end: 20221017
  38. LEVOFLOXACIN HEMIHYDRATE [Concomitant]
     Active Substance: LEVOFLOXACIN
     Indication: Neutrophil count decreased
     Dates: start: 20220123, end: 20220216
  39. LEVOFLOXACIN HEMIHYDRATE [Concomitant]
     Active Substance: LEVOFLOXACIN
     Indication: Neutrophil count decreased
     Dates: start: 20220618, end: 20220624
  40. LEVOFLOXACIN HEMIHYDRATE [Concomitant]
     Active Substance: LEVOFLOXACIN
     Indication: Neutrophil count decreased
     Dates: start: 20221209, end: 20221213
  41. LEVOFLOXACIN HEMIHYDRATE [Concomitant]
     Active Substance: LEVOFLOXACIN
     Indication: Neutrophil count decreased
     Dates: start: 20220522, end: 20220602
  42. LEVOFLOXACIN HEMIHYDRATE [Concomitant]
     Active Substance: LEVOFLOXACIN
     Indication: Neutrophil count decreased
     Dates: start: 20220222, end: 20220322
  43. ITRACONAZOLE [Concomitant]
     Active Substance: ITRACONAZOLE
     Indication: Neutrophil count decreased
     Dates: start: 20220222, end: 20220322
  44. ITRACONAZOLE [Concomitant]
     Active Substance: ITRACONAZOLE
     Indication: Neutrophil count decreased
     Dates: start: 20220222, end: 20220322
  45. VIDAZA [Concomitant]
     Active Substance: AZACITIDINE
     Indication: Acute myeloid leukaemia
     Dosage: 75 MG/M2
     Dates: start: 20221115, end: 20221121
  46. VIDAZA [Concomitant]
     Active Substance: AZACITIDINE
     Indication: Acute myeloid leukaemia
     Dosage: 75 MG/M2
     Dates: start: 20220119, end: 20220119
  47. VIDAZA [Concomitant]
     Active Substance: AZACITIDINE
     Indication: Acute myeloid leukaemia
     Dosage: 75 MG/M2
     Dates: start: 20220726, end: 20220801
  48. VIDAZA [Concomitant]
     Active Substance: AZACITIDINE
     Indication: Acute myeloid leukaemia
     Dosage: 75 MG/M2
     Dates: start: 20220222, end: 20220228
  49. VIDAZA [Concomitant]
     Active Substance: AZACITIDINE
     Indication: Acute myeloid leukaemia
     Dosage: 75 MG/M2
     Dates: start: 20220118, end: 20220118
  50. VIDAZA [Concomitant]
     Active Substance: AZACITIDINE
     Indication: Acute myeloid leukaemia
     Dosage: 75 MG/M2
     Dates: start: 20220530, end: 20220605
  51. VIDAZA [Concomitant]
     Active Substance: AZACITIDINE
     Indication: Acute myeloid leukaemia
     Dosage: 75 MG/M2
     Dates: start: 20221018, end: 20221024
  52. VIDAZA [Concomitant]
     Active Substance: AZACITIDINE
     Indication: Acute myeloid leukaemia
     Dosage: 75 MG/M2
     Dates: start: 20220502, end: 20220508
  53. VIDAZA [Concomitant]
     Active Substance: AZACITIDINE
     Indication: Acute myeloid leukaemia
     Dosage: 75 MG/M2
     Dates: start: 20220920, end: 20220926
  54. VIDAZA [Concomitant]
     Active Substance: AZACITIDINE
     Indication: Acute myeloid leukaemia
     Dosage: 75 MG/M2
     Dates: start: 20220823, end: 20220829
  55. VIDAZA [Concomitant]
     Active Substance: AZACITIDINE
     Indication: Acute myeloid leukaemia
     Dosage: 75 MG/M2
     Dates: start: 20220120, end: 20220124
  56. VIDAZA [Concomitant]
     Active Substance: AZACITIDINE
     Indication: Acute myeloid leukaemia
     Dosage: 75 MG/M2
     Dates: start: 20220627, end: 20220703
  57. VIDAZA [Concomitant]
     Active Substance: AZACITIDINE
     Indication: Acute myeloid leukaemia
     Dosage: 75 MG/M2
     Dates: start: 20221213, end: 20221219
  58. VIDAZA [Concomitant]
     Active Substance: AZACITIDINE
     Indication: Acute myeloid leukaemia
     Dosage: 75 MG/M2
     Dates: start: 20220325, end: 20220331
  59. MICAFUNGIN SODIUM [Concomitant]
     Active Substance: MICAFUNGIN SODIUM
     Indication: Infection prophylaxis
     Dates: start: 20220618, end: 20220624
  60. MICAFUNGIN SODIUM [Concomitant]
     Active Substance: MICAFUNGIN SODIUM
     Indication: Infection prophylaxis
     Dates: start: 20220714, end: 20220725
  61. MICAFUNGIN SODIUM [Concomitant]
     Active Substance: MICAFUNGIN SODIUM
     Indication: Infection prophylaxis
     Dates: start: 20220123, end: 20220216
  62. MICAFUNGIN SODIUM [Concomitant]
     Active Substance: MICAFUNGIN SODIUM
     Indication: Infection prophylaxis
     Dates: start: 20220815, end: 20220822
  63. MICAFUNGIN SODIUM [Concomitant]
     Active Substance: MICAFUNGIN SODIUM
     Indication: Infection prophylaxis
     Dates: start: 20221013, end: 20221017
  64. MICAFUNGIN SODIUM [Concomitant]
     Active Substance: MICAFUNGIN SODIUM
     Indication: Infection prophylaxis
     Dates: start: 20220910, end: 20220921
  65. MICAFUNGIN SODIUM [Concomitant]
     Active Substance: MICAFUNGIN SODIUM
     Indication: Infection prophylaxis
     Dates: start: 20220522, end: 20220602

REACTIONS (4)
  - Pneumonia fungal [Fatal]
  - Neutrophil count decreased [Unknown]
  - Pyrexia [Unknown]
  - Coronavirus pneumonia [Recovered/Resolved]

NARRATIVE: CASE EVENT DATE: 20230211
